FAERS Safety Report 10364038 (Version 1)
Quarter: 2014Q3

REPORT INFORMATION
  Report Type: Spontaneous
  Country: AR (occurrence: AR)
  Receive Date: 20140806
  Receipt Date: 20140806
  Transmission Date: 20150326
  Serious: Yes (Other)
  Sender: FDA-Public Use
  Company Number: AR-AMGEN-ARGSP2014058734

PATIENT
  Age: 58 Year
  Sex: Female

DRUGS (1)
  1. ENBREL [Suspect]
     Active Substance: ETANERCEPT
     Indication: RHEUMATOID ARTHRITIS
     Dosage: 50 MG, WEEKLY
     Route: 065
     Dates: start: 20120725

REACTIONS (8)
  - Pulmonary fibrosis [Recovered/Resolved]
  - Angina pectoris [Recovered/Resolved]
  - Malaise [Recovered/Resolved]
  - Drug hypersensitivity [Recovered/Resolved]
  - Sciatic nerve neuropathy [Recovered/Resolved]
  - Sinusitis [Recovered/Resolved]
  - Pharyngitis [Recovered/Resolved]
  - Tuberculosis [Recovered/Resolved]

NARRATIVE: CASE EVENT DATE: 201404
